FAERS Safety Report 23886895 (Version 1)
Quarter: 2024Q2

REPORT INFORMATION
  Report Type: Spontaneous
  Country: DE (occurrence: DE)
  Receive Date: 20240522
  Receipt Date: 20240522
  Transmission Date: 20240716
  Serious: Yes (Other)
  Sender: FDA-Public Use
  Company Number: DE-LESVI-2024002504

PATIENT
  Age: 32 Year
  Sex: Male

DRUGS (13)
  1. CONCERTA [Suspect]
     Active Substance: METHYLPHENIDATE HYDROCHLORIDE
     Indication: Product used for unknown indication
     Route: 065
  2. BUPROPION [Suspect]
     Active Substance: BUPROPION
     Indication: Attention deficit hyperactivity disorder
  3. BUPROPION [Suspect]
     Active Substance: BUPROPION
     Indication: Antidepressant therapy
  4. SUMATRIPTAN [Suspect]
     Active Substance: SUMATRIPTAN
     Indication: Product used for unknown indication
     Dosage: SYRINGE
     Route: 065
  5. NARATRIPTAN [Suspect]
     Active Substance: NARATRIPTAN HYDROCHLORIDE
     Indication: Cluster headache
     Route: 065
  6. NARATRIPTAN [Suspect]
     Active Substance: NARATRIPTAN HYDROCHLORIDE
  7. CORTISONE [Concomitant]
     Active Substance: CORTISONE
     Indication: Cluster headache
  8. LASMIDITAN [Concomitant]
     Active Substance: LASMIDITAN
     Indication: Off label use
  9. LASMIDITAN [Concomitant]
     Active Substance: LASMIDITAN
     Indication: Prophylaxis
  10. LASMIDITAN [Concomitant]
     Active Substance: LASMIDITAN
     Indication: Cluster headache
  11. OXYGEN [Concomitant]
     Active Substance: OXYGEN
     Indication: Cluster headache
  12. VERAPAMIL [Concomitant]
     Active Substance: VERAPAMIL HYDROCHLORIDE
     Indication: Cluster headache
     Dosage: 2 X 480 MG
  13. VERAPAMIL [Concomitant]
     Active Substance: VERAPAMIL HYDROCHLORIDE
     Dosage: 3 X 80 MG;

REACTIONS (4)
  - Incorrect product administration duration [Unknown]
  - Irritability [Unknown]
  - Myocardial infarction [Unknown]
  - Obsessive-compulsive symptom [Unknown]
